FAERS Safety Report 7589688-4 (Version None)
Quarter: 2011Q2

REPORT INFORMATION
  Report Type: 
  Country: None (occurrence: None)
  Receive Date: 20110603
  Receipt Date: 20110318
  Transmission Date: 20111010
  Serious: No
  Sender: FDA-Public Use
  Company Number: 2011SP012458

PATIENT
  Age: 67 Year
  Sex: Female

DRUGS (7)
  1. AMPHETAMINE AND DEXTROAMPHETAMINE SALTS [Concomitant]
  2. LORAZEPAM [Concomitant]
  3. CARTIA XT [Concomitant]
  4. SIMVASTATIN [Concomitant]
  5. ROPINIROLE [Concomitant]
  6. SAPHRIS [Suspect]
     Indication: BIPOLAR DISORDER
     Dosage: 5 MG;ONCE;BUCC
     Route: 002
     Dates: start: 20110315
  7. CYMBALTA [Concomitant]

REACTIONS (9)
  - INSOMNIA [None]
  - INCORRECT ROUTE OF DRUG ADMINISTRATION [None]
  - SOMNOLENCE [None]
  - DYSSTASIA [None]
  - POLLAKIURIA [None]
  - DISORIENTATION [None]
  - DYSPHAGIA [None]
  - RESTLESS LEGS SYNDROME [None]
  - DYSURIA [None]
